FAERS Safety Report 6832267-4 (Version None)
Quarter: 2010Q3

REPORT INFORMATION
  Report Type: 
  Country: None (occurrence: None)
  Receive Date: 20100712
  Receipt Date: 20100707
  Transmission Date: 20110219
  Serious: Yes (Other)
  Sender: FDA-Public Use
  Company Number: CHPA2010US11179

PATIENT
  Age: 82 Year
  Sex: Female
  Weight: 62.585 kg

DRUGS (1)
  1. KERI SENSITIVE SKIN(NCH) [Suspect]
     Indication: DRY SKIN
     Dosage: UNK,QD
     Route: 061
     Dates: start: 20100707, end: 20100707

REACTIONS (1)
  - BLOOD GLUCOSE INCREASED [None]
